FAERS Safety Report 21193338 (Version 2)
Quarter: 2022Q3

REPORT INFORMATION
  Report Type: Report from Study
  Country: US (occurrence: US)
  Receive Date: 20220810
  Receipt Date: 20220815
  Transmission Date: 20221027
  Serious: No
  Sender: FDA-Public Use
  Company Number: US-AMGEN-USASL2022132300

PATIENT
  Age: 90 Year
  Sex: Female

DRUGS (2)
  1. NEULASTA [Suspect]
     Active Substance: PEGFILGRASTIM
     Indication: Myelodysplastic syndrome
     Dosage: UNK
     Route: 065
  2. NEULASTA [Suspect]
     Active Substance: PEGFILGRASTIM
     Indication: Off label use

REACTIONS (4)
  - Off label use [Unknown]
  - Device physical property issue [Unknown]
  - Application site pain [Unknown]
  - Application site discomfort [Unknown]

NARRATIVE: CASE EVENT DATE: 20220729
